FAERS Safety Report 19714771 (Version 2)
Quarter: 2021Q3

REPORT INFORMATION
  Report Type: Spontaneous
  Country: US (occurrence: US)
  Receive Date: 20210818
  Receipt Date: 20210907
  Transmission Date: 20211014
  Serious: Yes (Death, Hospitalization, Other)
  Sender: FDA-Public Use
  Company Number: US-ACCORD-235798

PATIENT
  Age: 44 Year
  Sex: Male

DRUGS (5)
  1. ETOPOSIDE. [Suspect]
     Active Substance: ETOPOSIDE
     Indication: ANGIOCENTRIC LYMPHOMA
     Dosage: 100 MG/M2, ON DAYS 2 TO 4  FOR 1 CYCLE, 600 MG/M2
     Dates: start: 20200120, end: 20200219
  2. PEGASPARGASE [Suspect]
     Active Substance: PEGASPARGASE
     Indication: ANGIOCENTRIC LYMPHOMA
     Dosage: 2000 U/M2 GIVEN ON DAY 8 OF A 28?DAY?CYCLE
     Dates: start: 20200126, end: 2020
  3. METHOTREXATE. [Suspect]
     Active Substance: METHOTREXATE
     Indication: ANGIOCENTRIC LYMPHOMA
     Dosage: 2G/M2 GIVEN ON DAY 1 INTRAVITREAL?4 G/M2
     Dates: start: 20200119, end: 20200216
  4. IFOSFAMIDE. [Suspect]
     Active Substance: IFOSFAMIDE
     Indication: ANGIOCENTRIC LYMPHOMA
     Dosage: 9000 MG/M2, 1500 MG/M2 ON DAYS 2 TO 4  FOR1 CYCLE
     Dates: start: 20200120, end: 20200219
  5. DEXAMETHASONE. [Suspect]
     Active Substance: DEXAMETHASONE
     Indication: ANGIOCENTRIC LYMPHOMA
     Dosage: 40 MG/D GIVEN ON DAYS 2 TO 4 FOR 1 CYCLE, 240MG
     Dates: start: 20200120, end: 20200219

REACTIONS (3)
  - Off label use [Unknown]
  - Renal injury [Unknown]
  - Cytopenia [Unknown]

NARRATIVE: CASE EVENT DATE: 202003
